FAERS Safety Report 8153094-4 (Version None)
Quarter: 2012Q1

REPORT INFORMATION
  Report Type: 
  Country: None (occurrence: None)
  Receive Date: 20120221
  Receipt Date: 20120210
  Transmission Date: 20120608
  Serious: No
  Sender: FDA-Public Use
  Company Number: US-JNJFOC-20120207220

PATIENT
  Age: 37 Year
  Sex: Female

DRUGS (6)
  1. INVEGA SUSTENNA [Suspect]
     Indication: SCHIZOPHRENIA
     Route: 030
  2. LEXAPRO [Concomitant]
     Route: 065
  3. WELLBUTRIN [Concomitant]
     Route: 065
  4. TOPAMAX [Concomitant]
     Route: 065
  5. RISPERDAL [Concomitant]
     Route: 048
  6. INVEGA SUSTENNA [Suspect]
     Route: 030
     Dates: start: 20110601

REACTIONS (2)
  - NODULE [None]
  - INCORRECT DOSE ADMINISTERED [None]
